FAERS Safety Report 5967489-8 (Version None)
Quarter: 2008Q4

REPORT INFORMATION
  Report Type: 
  Country: None (occurrence: None)
  Receive Date: 20081125
  Receipt Date: 20081118
  Transmission Date: 20090506
  Serious: Yes (Other)
  Sender: FDA-Public Use
  Company Number: US-PFIZER INC-2008098012

PATIENT
  Sex: Male
  Weight: 93.181 kg

DRUGS (7)
  1. VIAGRA [Suspect]
     Indication: ERECTILE DYSFUNCTION
     Route: 048
  2. VIAGRA [Suspect]
     Route: 048
     Dates: start: 20081001, end: 20081001
  3. HUMULIN 70/30 [Concomitant]
  4. BUSPAR [Concomitant]
  5. CETIRIZINE HCL [Concomitant]
  6. VITAMINS [Concomitant]
  7. NEXIUM [Concomitant]

REACTIONS (5)
  - CARPAL TUNNEL SYNDROME [None]
  - DRUG INEFFECTIVE [None]
  - INFECTION [None]
  - INSOMNIA [None]
  - INTENTIONAL DRUG MISUSE [None]
